FAERS Safety Report 5454088-X (Version None)
Quarter: 2007Q3

REPORT INFORMATION
  Report Type: 
  Country: None (occurrence: None)
  Receive Date: 20070917
  Receipt Date: 20060808
  Transmission Date: 20080115
  Serious: No
  Sender: FDA-Public Use
  Company Number: US-ASTRAZENECA-2006UW07207

PATIENT
  Age: 57 Year
  Sex: Female

DRUGS (4)
  1. SEROQUEL [Suspect]
     Indication: SLEEP DISORDER
     Dosage: 25 MG BID AT BEDTIME
     Route: 048
     Dates: start: 20060301
  2. SEROQUEL [Interacting]
     Route: 048
     Dates: start: 20030101
  3. CYMBALTA [Interacting]
     Dates: start: 20050101
  4. VALIUM [Concomitant]
     Indication: SLEEP DISORDER

REACTIONS (6)
  - ARTHRALGIA [None]
  - BLOOD GLUCOSE INCREASED [None]
  - BONE PAIN [None]
  - DRUG INTERACTION [None]
  - HYPERTENSION [None]
  - MYALGIA [None]
